FAERS Safety Report 20155947 (Version 1)
Quarter: 2021Q4

REPORT INFORMATION
  Report Type: Spontaneous
  Country: US (occurrence: None)
  Receive Date: 20211206
  Receipt Date: 20211206
  Transmission Date: 20220303
  Serious: Yes (Other)
  Sender: FDA-Public Use
  Company Number: None

PATIENT
  Age: 44 Year
  Sex: Male
  Weight: 85.7 kg

DRUGS (13)
  1. CASIRIVIMAB\IMDEVIMAB [Suspect]
     Active Substance: CASIRIVIMAB\IMDEVIMAB
     Indication: COVID-19
     Dosage: OTHER FREQUENCY : ONCE;?
     Route: 041
     Dates: start: 20211127, end: 20211127
  2. APIXABAN [Concomitant]
     Active Substance: APIXABAN
  3. ASCORBIC ACID [Concomitant]
     Active Substance: ASCORBIC ACID
  4. BACLOFEN [Concomitant]
     Active Substance: BACLOFEN
  5. CEFTRIAXONE [Concomitant]
     Active Substance: CEFTRIAXONE
  6. CETIRIZINE [Concomitant]
     Active Substance: CETIRIZINE HYDROCHLORIDE
  7. CHOLECALCIFEROL [Concomitant]
     Active Substance: CHOLECALCIFEROL
  8. DEXAMETHASONE [Concomitant]
     Active Substance: DEXAMETHASONE
  9. guaufensin/dextromethorphan [Concomitant]
  10. VITAMINS [Concomitant]
     Active Substance: VITAMINS
  11. ARTIFICIAL TEARS [Concomitant]
     Active Substance: GLYCERIN\HYPROMELLOSES\POLYETHYLENE GLYCOL 400
  12. TEMAZEPAM [Concomitant]
     Active Substance: TEMAZEPAM
  13. TRAMADOL [Concomitant]
     Active Substance: TRAMADOL

REACTIONS (4)
  - Urticaria [None]
  - Erythema [None]
  - Erythema [None]
  - Hypersensitivity [None]

NARRATIVE: CASE EVENT DATE: 20211127
